FAERS Safety Report 4556167-8 (Version None)
Quarter: 2005Q1

REPORT INFORMATION
  Report Type: 
  Country: None (occurrence: None)
  Receive Date: 20050103
  Receipt Date: 20040921
  Transmission Date: 20050727
  Serious: Yes (Life-Threatening, Hospitalization)
  Sender: FDA-Public Use
  Company Number: 2004UW19678

PATIENT
  Age: 73 Year
  Sex: Male

DRUGS (11)
  1. CRESTOR [Suspect]
     Indication: DYSLIPIDAEMIA
     Dosage: 10 MG DAILY PO
     Route: 048
     Dates: start: 20040201, end: 20040826
  2. HYTRIN [Concomitant]
  3. LASIX [Concomitant]
  4. VISTARIL [Concomitant]
  5. LISINOPRIL [Concomitant]
  6. DILACOR XR [Concomitant]
  7. ECOTRIN [Concomitant]
  8. TOPROL-XL [Concomitant]
  9. ACIPHEX [Concomitant]
  10. LORTAB [Concomitant]
  11. TRIMETHOBENZAMIDE [Concomitant]

REACTIONS (1)
  - RENAL FAILURE ACUTE [None]
